FAERS Safety Report 17478191 (Version 1)
Quarter: 2020Q1

REPORT INFORMATION
  Report Type: Spontaneous
  Country: US (occurrence: US)
  Receive Date: 20200228
  Receipt Date: 20200228
  Transmission Date: 20200409
  Serious: No
  Sender: FDA-Public Use
  Company Number: US-TEVA-2020-US-1192339

PATIENT

DRUGS (1)
  1. METOPROLOL ER SUCCINATE [Suspect]
     Active Substance: METOPROLOL SUCCINATE
     Route: 065
     Dates: start: 20200128

REACTIONS (4)
  - Joint swelling [Unknown]
  - Dyspnoea [Unknown]
  - Peripheral swelling [Unknown]
  - Mouth swelling [Unknown]
